FAERS Safety Report 9848514 (Version 1)
Quarter: 2014Q1

REPORT INFORMATION
  Report Type: Spontaneous
  Country: US (occurrence: None)
  Receive Date: 20140127
  Receipt Date: 20140127
  Transmission Date: 20141002
  Serious: Yes (Other)
  Sender: FDA-Public Use
  Company Number: None

PATIENT
  Age: 56 Year
  Sex: Male
  Weight: 112.95 kg

DRUGS (1)
  1. EQUATE ENEMA [Suspect]
     Indication: CONSTIPATION
     Dates: start: 20140116, end: 20140123

REACTIONS (3)
  - Pain [None]
  - Constipation [None]
  - Rectal haemorrhage [None]
